FAERS Safety Report 12109259 (Version 1)
Quarter: 2016Q1

REPORT INFORMATION
  Report Type: Spontaneous
  Country: US (occurrence: None)
  Receive Date: 20160222
  Receipt Date: 20160222
  Transmission Date: 20160526
  Serious: Yes (Other)
  Sender: FDA-Public Use
  Company Number: None

PATIENT
  Sex: Male

DRUGS (1)
  1. ORENCIA [Suspect]
     Active Substance: ABATACEPT
     Dosage: ORENCIA 125MG/ML WEEKLY SUBCUTANEOUSLY
     Route: 058
     Dates: start: 201511, end: 201602

REACTIONS (2)
  - Local swelling [None]
  - Dyspnoea [None]
